FAERS Safety Report 11886670 (Version 1)
Quarter: 2016Q1

REPORT INFORMATION
  Report Type: Spontaneous
  Country: US (occurrence: US)
  Receive Date: 20160104
  Receipt Date: 20160104
  Transmission Date: 20160526
  Serious: Yes (Hospitalization, Other)
  Sender: FDA-Public Use
  Company Number: US-PURDUE-USA-2015-0128147

PATIENT
  Sex: Male

DRUGS (2)
  1. OXYCONTIN [Suspect]
     Active Substance: OXYCODONE HYDROCHLORIDE
     Indication: PAIN
     Dosage: 15 MG, UNK
     Route: 048
     Dates: start: 20151222
  2. OXYCODONE HCL IR CAPSULES [Suspect]
     Active Substance: OXYCODONE HYDROCHLORIDE
     Indication: PAIN
     Dosage: 15 MG, QID
     Route: 048

REACTIONS (10)
  - Mobility decreased [Unknown]
  - Nausea [Unknown]
  - Abdominal discomfort [Unknown]
  - Emotional distress [Unknown]
  - Pain [Unknown]
  - Abdominal pain upper [Unknown]
  - Knee operation [Unknown]
  - Constipation [Unknown]
  - Back pain [Unknown]
  - Inadequate analgesia [Unknown]
